FAERS Safety Report 16465766 (Version 2)
Quarter: 2019Q3

REPORT INFORMATION
  Report Type: Spontaneous
  Country: MX (occurrence: MX)
  Receive Date: 20190621
  Receipt Date: 20190906
  Transmission Date: 20191004
  Serious: Yes (Other)
  Sender: FDA-Public Use
  Company Number: MX-ASTRAZENECA-2019SE89475

PATIENT
  Age: 24547 Day
  Sex: Female
  Weight: 59 kg

DRUGS (2)
  1. XIGDUO XR [Suspect]
     Active Substance: DAPAGLIFLOZIN PROPANEDIOL\METFORMIN HYDROCHLORIDE
     Indication: DIABETES MELLITUS
     Dosage: 5/1000 MG 1 TABLET EVERY 24 HOURS, IN THE MORNING
     Route: 048
     Dates: start: 20190605
  2. XIGDUO XR [Suspect]
     Active Substance: DAPAGLIFLOZIN PROPANEDIOL\METFORMIN HYDROCHLORIDE
     Indication: TYPE 2 DIABETES MELLITUS
     Dosage: 5/1000 MG 1 TABLET EVERY 24 HOURS, IN THE MORNING
     Route: 048
     Dates: start: 20190605

REACTIONS (5)
  - Weight decreased [Unknown]
  - Herpes virus infection [Recovering/Resolving]
  - Vision blurred [Not Recovered/Not Resolved]
  - Asthenia [Recovered/Resolved]
  - Constipation [Recovered/Resolved]

NARRATIVE: CASE EVENT DATE: 20190605
